FAERS Safety Report 8215395-0 (Version None)
Quarter: 2012Q1

REPORT INFORMATION
  Report Type: 
  Country: None (occurrence: None)
  Receive Date: 20120316
  Receipt Date: 20120305
  Transmission Date: 20120608
  Serious: Yes (Other)
  Sender: FDA-Public Use
  Company Number: BR-AMGEN-BRASP2012015427

PATIENT
  Age: 50 Year
  Sex: Female
  Weight: 66 kg

DRUGS (4)
  1. ARAVA [Concomitant]
     Dosage: 20 MG, UNK
  2. ENALAPRIL [Concomitant]
     Dosage: 5 MG, UNK
  3. ENBREL [Suspect]
     Indication: RHEUMATOID ARTHRITIS
     Dosage: 50 MG, WEEKLY
     Route: 058
     Dates: start: 20120101
  4. ENBREL [Suspect]
     Dosage: UNK
     Route: 058
     Dates: start: 20090801, end: 20111201

REACTIONS (5)
  - VARICOSE VEIN [None]
  - FATIGUE [None]
  - BLOOD PRESSURE ABNORMAL [None]
  - INJECTION SITE PAIN [None]
  - OBESITY SURGERY [None]
